FAERS Safety Report 9395660 (Version 1)
Quarter: 2013Q3

REPORT INFORMATION
  Report Type: Report from Study
  Country: AU (occurrence: AU)
  Receive Date: 20130711
  Receipt Date: 20130711
  Transmission Date: 20140515
  Serious: Yes (Other)
  Sender: FDA-Public Use
  Company Number: AU-JNJFOC-20130704935

PATIENT
  Age: 88 Year
  Sex: Female

DRUGS (14)
  1. XARELTO [Suspect]
     Indication: ATRIAL FIBRILLATION
     Route: 048
     Dates: start: 20120918
  2. XARELTO [Suspect]
     Indication: ATRIAL FIBRILLATION
     Route: 048
  3. XARELTO [Suspect]
     Indication: CEREBROVASCULAR ACCIDENT PROPHYLAXIS
     Route: 048
  4. XARELTO [Suspect]
     Indication: CEREBROVASCULAR ACCIDENT PROPHYLAXIS
     Route: 048
     Dates: start: 20120918
  5. DOMPERIDONE [Concomitant]
     Route: 065
  6. SOTALOL [Concomitant]
     Dosage: HALF A TABLET TWICE DAILY
     Route: 065
  7. PRAMIPEXOLE [Concomitant]
     Dosage: HALF A TABLET AT NIGHT
     Route: 065
  8. SALBUTAMOL [Concomitant]
     Dosage: INHALE 2 DOS EVERY FOUR HOURS
     Route: 065
  9. FUROSEMIDE [Concomitant]
     Dosage: HALF A TABLET IN THE MORNING
     Route: 065
  10. RALOXIFENE [Concomitant]
     Dosage: 1 TABLET IN THE MORNING
     Route: 065
  11. DOCUSATE [Concomitant]
     Route: 065
  12. AMOXYCILLIN [Concomitant]
     Route: 065
  13. DIGOXIN [Concomitant]
     Dosage: 2 TABLETS AT NIGHT
     Route: 065
  14. PREGABALIN [Concomitant]
     Route: 065

REACTIONS (1)
  - Renal impairment [Unknown]
